FAERS Safety Report 7298057-6 (Version None)
Quarter: 2011Q1

REPORT INFORMATION
  Report Type: 
  Country: None (occurrence: None)
  Receive Date: 20110217
  Receipt Date: 20110209
  Transmission Date: 20110831
  Serious: Yes (Hospitalization, Other)
  Sender: FDA-Public Use
  Company Number: US-US-EMD SERONO, INC.-7024521

PATIENT
  Sex: Female

DRUGS (1)
  1. REBIF [Suspect]
     Indication: MULTIPLE SCLEROSIS
     Route: 058
     Dates: start: 20100917, end: 20110201

REACTIONS (10)
  - PHARYNGEAL OEDEMA [None]
  - CONVULSION [None]
  - MULTIPLE SCLEROSIS RELAPSE [None]
  - ULCERATIVE KERATITIS [None]
  - CENTRAL NERVOUS SYSTEM LESION [None]
  - HYPERTONIA [None]
  - UHTHOFF'S PHENOMENON [None]
  - URINARY INCONTINENCE [None]
  - DEPRESSED MOOD [None]
  - MEMORY IMPAIRMENT [None]
